FAERS Safety Report 8184299-4 (Version None)
Quarter: 2012Q1

REPORT INFORMATION
  Report Type: 
  Country: None (occurrence: None)
  Receive Date: 20120301
  Receipt Date: 20120214
  Transmission Date: 20120608
  Serious: Yes (Hospitalization)
  Sender: FDA-Public Use
  Company Number: 20120093

PATIENT
  Age: 51 Year
  Sex: Female

DRUGS (1)
  1. FUROSEMIDE [Suspect]

REACTIONS (8)
  - HAEMORRHOIDS [None]
  - ANAEMIA [None]
  - CONDITION AGGRAVATED [None]
  - DYSPNOEA [None]
  - HIATUS HERNIA [None]
  - GASTROINTESTINAL TRACT MUCOSAL PIGMENTATION [None]
  - GASTRITIS [None]
  - DIVERTICULUM [None]
